FAERS Safety Report 5217119-8 (Version None)
Quarter: 2007Q1

REPORT INFORMATION
  Report Type: 
  Country: None (occurrence: None)
  Receive Date: 20070124
  Receipt Date: 20070123
  Transmission Date: 20070707
  Serious: Yes (Hospitalization, Other)
  Sender: FDA-Public Use
  Company Number: US-GLAXOSMITHKLINE-A0629437A

PATIENT
  Age: 70 Year
  Sex: Male
  Weight: 97.7 kg

DRUGS (12)
  1. AVANDIA [Suspect]
     Route: 048
     Dates: start: 20010101, end: 20060207
  2. GEMFIBROZIL [Concomitant]
  3. POTASSIUM CHLORIDE [Concomitant]
  4. AMIODARONE HCL [Concomitant]
  5. COREG [Concomitant]
  6. OMEPRAZOLE [Concomitant]
  7. FUROSEMIDE [Concomitant]
  8. ALLOPURINOL SODIUM [Concomitant]
  9. LISINOPRIL [Concomitant]
  10. DIGOXIN [Concomitant]
  11. ASPIRIN [Concomitant]
  12. INSULIN [Concomitant]

REACTIONS (9)
  - ASTHENIA [None]
  - CARDIAC FAILURE CONGESTIVE [None]
  - COUGH [None]
  - DYSPNOEA [None]
  - DYSPNOEA EXERTIONAL [None]
  - FATIGUE [None]
  - ORTHOPNOEA [None]
  - PULMONARY CONGESTION [None]
  - WEIGHT DECREASED [None]
